FAERS Safety Report 17395487 (Version 4)
Quarter: 2020Q1

REPORT INFORMATION
  Report Type: Spontaneous
  Country: US (occurrence: US)
  Receive Date: 20200210
  Receipt Date: 20200319
  Transmission Date: 20200409
  Serious: No
  Sender: FDA-Public Use
  Company Number: US-GLAXOSMITHKLINE-US2020018381

PATIENT
  Age: 29 Year
  Sex: Male
  Weight: 63.49 kg

DRUGS (2)
  1. EQUATE NICOTINE [Suspect]
     Active Substance: NICOTINE
     Indication: SMOKING CESSATION THERAPY
     Dosage: UNK
     Dates: start: 20200121
  2. EQUATE NICOTINE [Suspect]
     Active Substance: NICOTINE
     Dosage: UNK

REACTIONS (5)
  - Application site irritation [Unknown]
  - Nausea [Unknown]
  - Product complaint [Unknown]
  - Dizziness [Unknown]
  - Application site pruritus [Unknown]

NARRATIVE: CASE EVENT DATE: 20200124
